FAERS Safety Report 24423628 (Version 1)
Quarter: 2024Q4

REPORT INFORMATION
  Report Type: Spontaneous
  Country: US (occurrence: None)
  Receive Date: 20241009
  Receipt Date: 20241009
  Transmission Date: 20250114
  Serious: Yes (Hospitalization, Disabling)
  Sender: Public
  Company Number: None

PATIENT
  Age: 54 Year
  Sex: Female
  Weight: 85.5 kg

DRUGS (8)
  1. JARDIANCE [Suspect]
     Active Substance: EMPAGLIFLOZIN
     Indication: Diabetes mellitus
     Dosage: OTHER QUANTITY : 90 TABLET(S);?
     Route: 048
     Dates: start: 20240829, end: 20240906
  2. Pantopraxole [Concomitant]
  3. METOPROLOL SUCCINATE [Concomitant]
     Active Substance: METOPROLOL SUCCINATE
  4. DILTIAZEM [Concomitant]
     Active Substance: DILTIAZEM
  5. FLUOXETINE [Concomitant]
     Active Substance: FLUOXETINE HYDROCHLORIDE
  6. METFORMIN [Concomitant]
     Active Substance: METFORMIN HYDROCHLORIDE
  7. ATORVASTATIN [Concomitant]
     Active Substance: ATORVASTATIN
  8. PRAMIPEXOLE [Concomitant]
     Active Substance: PRAMIPEXOLE\PRAMIPEXOLE DIHYDROCHLORIDE

REACTIONS (6)
  - Vomiting [None]
  - Diarrhoea [None]
  - Headache [None]
  - Stevens-Johnson syndrome [None]
  - Erythema [None]
  - Skin discolouration [None]

NARRATIVE: CASE EVENT DATE: 20240906
